FAERS Safety Report 6128027-2 (Version None)
Quarter: 2009Q1

REPORT INFORMATION
  Report Type: 
  Country: None (occurrence: None)
  Receive Date: 20090320
  Receipt Date: 20090320
  Transmission Date: 20090719
  Serious: No
  Sender: FDA-Public Use
  Company Number: None

PATIENT
  Age: 57 Year
  Sex: Male
  Weight: 80 kg

DRUGS (3)
  1. OXALIPLATIN [Suspect]
     Indication: METASTASES TO BONE
     Dosage: 170 MG OTHER IV
     Route: 042
     Dates: start: 20090303, end: 20090317
  2. OXALIPLATIN [Suspect]
     Indication: METASTASES TO LUNG
     Dosage: 170 MG OTHER IV
     Route: 042
     Dates: start: 20090303, end: 20090317
  3. OXALIPLATIN [Suspect]
     Indication: RECTAL CANCER
     Dosage: 170 MG OTHER IV
     Route: 042
     Dates: start: 20090303, end: 20090317

REACTIONS (3)
  - BRONCHOSPASM [None]
  - CHILLS [None]
  - DYSPNOEA [None]
